FAERS Safety Report 9501765 (Version 2)
Quarter: 2013Q3

REPORT INFORMATION
  Report Type: Spontaneous
  Country: JP (occurrence: JP)
  Receive Date: 20130905
  Receipt Date: 20130905
  Transmission Date: 20140515
  Serious: Yes (Death, Other)
  Sender: FDA-Public Use
  Company Number: PHHY2013JP067074

PATIENT
  Age: 80 Year
  Sex: Female

DRUGS (1)
  1. VOLTAREN [Suspect]
     Indication: RECTAL CANCER
     Dosage: UNK UKN, UNK
     Route: 054

REACTIONS (4)
  - Death [Fatal]
  - Melaena [Unknown]
  - Nausea [Unknown]
  - Hypophagia [Unknown]
